FAERS Safety Report 4446487-X (Version None)
Quarter: 2004Q3

REPORT INFORMATION
  Report Type: 
  Country: None (occurrence: None)
  Receive Date: 20040907
  Receipt Date: 20040825
  Transmission Date: 20050211
  Serious: Yes (Other)
  Sender: FDA-Public Use
  Company Number: 2004060467

PATIENT
  Sex: Female

DRUGS (7)
  1. NEURONTIN [Suspect]
     Indication: ILL-DEFINED DISORDER
  2. FLUOXETINE HYDROCHLORIDE [Suspect]
     Indication: ILL-DEFINED DISORDER
  3. METHADONE HCL [Suspect]
     Indication: PAIN
  4. ASPIRIN [Suspect]
     Indication: ILL-DEFINED DISORDER
  5. IBUPROFEN [Suspect]
     Indication: ILL-DEFINED DISORDER
  6. ETODOLAC [Suspect]
     Indication: ILL-DEFINED DISORDER
  7. VICODIN (HYDROCHODONE BITARTRATE, PARACETAMOL) [Concomitant]

REACTIONS (4)
  - DIABETES MELLITUS [None]
  - GASTRIC DISORDER [None]
  - NEUROPATHIC ARTHROPATHY [None]
  - OSTEOPOROSIS [None]
